FAERS Safety Report 4664806-6 (Version None)
Quarter: 2005Q2

REPORT INFORMATION
  Report Type: 
  Country: None (occurrence: None)
  Receive Date: 20050516
  Receipt Date: 20050501
  Transmission Date: 20051028
  Serious: Yes (Death)
  Sender: FDA-Public Use
  Company Number: 2003117985

PATIENT
  Age: 19 Year
  Sex: Female

DRUGS (7)
  1. ZIPRASIDONE HCL [Suspect]
     Indication: CONDUCT DISORDER
     Dosage: 100 MG (DAILY), ORAL
     Route: 048
  2. TRAZODONE HCL [Concomitant]
  3. PAROXETINE HCL [Concomitant]
  4. CLONAZEPAM [Concomitant]
  5. BIPERIDEN (BIPERIDEN) [Concomitant]
  6. NITRAZEPAM [Concomitant]
  7. LAXATIVES (LAXATIVES) [Concomitant]

REACTIONS (1)
  - SUDDEN DEATH [None]
